FAERS Safety Report 12744574 (Version 1)
Quarter: 2016Q3

REPORT INFORMATION
  Report Type: Spontaneous
  Country: US (occurrence: US)
  Receive Date: 20160914
  Receipt Date: 20160914
  Transmission Date: 20161109
  Serious: No
  Sender: FDA-Public Use
  Company Number: US-JAZZ-2016-US-009213

PATIENT
  Sex: Female

DRUGS (21)
  1. CALCIUM +D [Concomitant]
     Active Substance: CALCIUM\VITAMIN D
  2. VITAMIN B-12 TR [Concomitant]
  3. ALEVE [Concomitant]
     Active Substance: NAPROXEN SODIUM
  4. NUVIGIL [Concomitant]
     Active Substance: ARMODAFINIL
  5. MELOXICAM. [Concomitant]
     Active Substance: MELOXICAM
  6. FISH OIL DR [Concomitant]
  7. MULTIVITAMINS [Concomitant]
     Active Substance: VITAMINS
  8. PROAIR HFA [Concomitant]
     Active Substance: ALBUTEROL SULFATE
  9. XYREM [Suspect]
     Active Substance: SODIUM OXYBATE
     Indication: NARCOLEPSY
     Dosage: 2.25 G, BID
     Route: 048
     Dates: start: 201601, end: 201602
  10. XYREM [Suspect]
     Active Substance: SODIUM OXYBATE
     Dosage: DOSE ADJUSTMENTS
     Route: 048
     Dates: start: 2016, end: 2016
  11. FLUOROURACIL. [Concomitant]
     Active Substance: FLUOROURACIL
  12. BENADRYL ALLERGY [Concomitant]
     Active Substance: DIPHENHYDRAMINE HYDROCHLORIDE
  13. SYNTHROID [Concomitant]
     Active Substance: LEVOTHYROXINE SODIUM
  14. VITAMIN D [Concomitant]
     Active Substance: CHOLECALCIFEROL
  15. AZITHROMYCIN ANHYDROUS. [Concomitant]
     Active Substance: AZITHROMYCIN ANHYDROUS
  16. XYREM [Suspect]
     Active Substance: SODIUM OXYBATE
     Dosage: 3.75 G, BID
     Route: 048
     Dates: start: 20160516
  17. LISINOPRIL. [Concomitant]
     Active Substance: LISINOPRIL
  18. DETROL LA [Concomitant]
     Active Substance: TOLTERODINE TARTRATE
  19. BONIVA [Concomitant]
     Active Substance: IBANDRONATE SODIUM
  20. NASONEX [Concomitant]
     Active Substance: MOMETASONE FUROATE
  21. VITAMIN C [Concomitant]
     Active Substance: ASCORBIC ACID

REACTIONS (2)
  - Nausea [Not Recovered/Not Resolved]
  - Nasopharyngitis [Recovering/Resolving]
